FAERS Safety Report 15573583 (Version 9)
Quarter: 2020Q2

REPORT INFORMATION
  Report Type: Report from Study
  Country: US (occurrence: US)
  Receive Date: 20181101
  Receipt Date: 20200526
  Transmission Date: 20200713
  Serious: Yes (Death, Hospitalization, Other)
  Sender: FDA-Public Use
  Company Number: US-ASTELLAS-2018US046094

PATIENT
  Age: 75 Year
  Sex: Male

DRUGS (1)
  1. ENZALUTAMIDE [Suspect]
     Active Substance: ENZALUTAMIDE
     Indication: PROSTATE CANCER
     Route: 048
     Dates: start: 20171011

REACTIONS (13)
  - Thrombosis [Unknown]
  - Abdominal pain upper [Unknown]
  - Dysuria [Not Recovered/Not Resolved]
  - Rib fracture [Unknown]
  - Nausea [Unknown]
  - Blood count abnormal [Unknown]
  - Fall [Unknown]
  - Pulmonary embolism [Unknown]
  - Abdominal pain [Not Recovered/Not Resolved]
  - Oral infection [Unknown]
  - Death [Fatal]
  - Osteonecrosis of jaw [Unknown]
  - Exostosis [Unknown]

NARRATIVE: CASE EVENT DATE: 20180822
